FAERS Safety Report 4626738-9 (Version None)
Quarter: 2005Q2

REPORT INFORMATION
  Report Type: 
  Country: None (occurrence: None)
  Receive Date: 20050405
  Receipt Date: 20050330
  Transmission Date: 20051028
  Serious: Yes (Other)
  Sender: FDA-Public Use
  Company Number: 200511163FR

PATIENT
  Age: 62 Year
  Sex: Male

DRUGS (2)
  1. KETEK [Suspect]
     Indication: LARYNGOPHARYNGITIS
     Route: 048
     Dates: start: 20050324, end: 20050328
  2. TEMERIT [Concomitant]
     Indication: ARRHYTHMIA
     Route: 048
     Dates: start: 20041001

REACTIONS (1)
  - ATRIAL FIBRILLATION [None]
